FAERS Safety Report 14865280 (Version 1)
Quarter: 2018Q2

REPORT INFORMATION
  Report Type: Spontaneous
  Country: US (occurrence: US)
  Receive Date: 20180508
  Receipt Date: 20180508
  Transmission Date: 20180711
  Serious: No
  Sender: FDA-Public Use
  Company Number: US-ALKERMES INC.-ALK-2017-005041

PATIENT
  Age: 29 Year
  Sex: Male
  Weight: 86.17 kg

DRUGS (1)
  1. VIVITROL [Suspect]
     Active Substance: NALTREXONE
     Indication: DRUG DEPENDENCE
     Dosage: 380 MG, QMO
     Route: 030
     Dates: start: 20171031, end: 20171127

REACTIONS (13)
  - Thinking abnormal [Recovered/Resolved]
  - Substance use [Unknown]
  - Therapeutic response shortened [Unknown]
  - Cardiac discomfort [Recovered/Resolved]
  - Seizure [Recovered/Resolved]
  - Chest pain [Not Recovered/Not Resolved]
  - Palpitations [Recovered/Resolved]
  - Head discomfort [Not Recovered/Not Resolved]
  - Morbid thoughts [Recovered/Resolved]
  - Euphoric mood [Unknown]
  - Drug dependence [Unknown]
  - Dyspnoea [Not Recovered/Not Resolved]
  - Feeling abnormal [Unknown]

NARRATIVE: CASE EVENT DATE: 201711
